FAERS Safety Report 13876943 (Version 1)
Quarter: 2017Q3

REPORT INFORMATION
  Report Type: Spontaneous
  Country: PH (occurrence: PH)
  Receive Date: 20170817
  Receipt Date: 20170817
  Transmission Date: 20171127
  Serious: Yes (Death, Other)
  Sender: FDA-Public Use
  Company Number: PH-ASTELLAS-2017US032856

PATIENT
  Age: 84 Year
  Sex: Male

DRUGS (1)
  1. MYCAMINE [Suspect]
     Active Substance: MICAFUNGIN SODIUM
     Indication: FUNGAL INFECTION
     Dosage: 100 MG, EVERY 24 HOURS
     Route: 042
     Dates: start: 20170804, end: 20170812

REACTIONS (3)
  - Pulmonary congestion [Fatal]
  - Pneumonia [Fatal]
  - Respiratory failure [Fatal]
